FAERS Safety Report 20035322 (Version 2)
Quarter: 2021Q4

REPORT INFORMATION
  Report Type: Report from Study
  Country: US (occurrence: US)
  Receive Date: 20211104
  Receipt Date: 20211117
  Transmission Date: 20220303
  Serious: Yes (Other)
  Sender: FDA-Public Use
  Company Number: US-TEVA-2021-US-1972580

PATIENT
  Age: 24 Year
  Sex: Female

DRUGS (2)
  1. CARBOPLATIN [Suspect]
     Active Substance: CARBOPLATIN
     Indication: Astrocytoma
     Dosage: 400MG/M2 RECEIVED 11 CYCLES
     Route: 013
  2. MELPHALAN [Concomitant]
     Active Substance: MELPHALAN
     Indication: Astrocytoma
     Dosage: 8 MG/M2 RECEIVED 11 CYCLES
     Route: 013

REACTIONS (2)
  - Cystitis haemorrhagic [Unknown]
  - Drug hypersensitivity [Unknown]
